FAERS Safety Report 24058804 (Version 2)
Quarter: 2025Q2

REPORT INFORMATION
  Report Type: Report from Study
  Country: DE (occurrence: DE)
  Receive Date: 20240708
  Receipt Date: 20250430
  Transmission Date: 20250717
  Serious: Yes (Hospitalization, Other)
  Sender: NORDIC PHARMA
  Company Number: DE-NOVPHSZ-PHHY2018DE079257

PATIENT
  Sex: Female

DRUGS (24)
  1. METHOTREXATE [Suspect]
     Active Substance: METHOTREXATE
     Indication: Rheumatoid arthritis
     Route: 050
     Dates: start: 20160115
  2. METHOTREXATE [Suspect]
     Active Substance: METHOTREXATE
     Indication: Rheumatoid arthritis
     Route: 050
     Dates: start: 20160309
  3. METHOTREXATE [Suspect]
     Active Substance: METHOTREXATE
     Indication: Rheumatoid arthritis
     Route: 050
     Dates: start: 20160705
  4. METHOTREXATE [Suspect]
     Active Substance: METHOTREXATE
     Indication: Rheumatoid arthritis
     Route: 050
     Dates: start: 20170117
  5. METHOTREXATE [Suspect]
     Active Substance: METHOTREXATE
     Indication: Rheumatoid arthritis
     Route: 050
     Dates: start: 20170613
  6. METHOTREXATE [Suspect]
     Active Substance: METHOTREXATE
     Indication: Rheumatoid arthritis
     Route: 050
     Dates: start: 20180123
  7. METHOTREXATE [Suspect]
     Active Substance: METHOTREXATE
     Indication: Rheumatoid arthritis
     Route: 050
     Dates: start: 20181002
  8. METHOTREXATE [Suspect]
     Active Substance: METHOTREXATE
     Indication: Rheumatoid arthritis
     Route: 050
     Dates: start: 20190806
  9. METHOTREXATE [Suspect]
     Active Substance: METHOTREXATE
     Indication: Rheumatoid arthritis
     Route: 050
     Dates: start: 20201013
  10. METHOTREXATE [Suspect]
     Active Substance: METHOTREXATE
     Indication: Rheumatoid arthritis
     Route: 050
     Dates: start: 20200218
  11. METHOTREXATE [Suspect]
     Active Substance: METHOTREXATE
     Indication: Rheumatoid arthritis
     Route: 050
     Dates: start: 20210121
  12. METHOTREXATE [Suspect]
     Active Substance: METHOTREXATE
     Indication: Rheumatoid arthritis
     Route: 050
     Dates: start: 20210623
  13. METHOTREXATE [Suspect]
     Active Substance: METHOTREXATE
     Indication: Rheumatoid arthritis
     Route: 065
  14. METHOTREXATE [Suspect]
     Active Substance: METHOTREXATE
     Indication: Rheumatoid arthritis
     Route: 065
  15. METHOTREXATE [Suspect]
     Active Substance: METHOTREXATE
     Indication: Rheumatoid arthritis
     Route: 065
  16. RIXATHON (Rituximab) [Concomitant]
     Indication: Rheumatoid arthritis
     Route: 065
     Dates: start: 201908
  17. RIXATHON (Rituximab) [Concomitant]
     Indication: Rheumatoid arthritis
     Route: 065
     Dates: start: 202005
  18. RIXATHON (Rituximab) [Concomitant]
     Indication: Rheumatoid arthritis
     Route: 065
     Dates: start: 202106
  19. RIXATHON (Rituximab) [Concomitant]
     Indication: Rheumatoid arthritis
     Route: 065
     Dates: start: 201809
  20. RIXATHON (Rituximab) [Concomitant]
     Indication: Rheumatoid arthritis
     Route: 065
     Dates: start: 202207
  21. RIXATHON (Rituximab) [Concomitant]
     Indication: Rheumatoid arthritis
     Route: 065
     Dates: start: 202306
  22. RITUXIMAB [Concomitant]
     Active Substance: RITUXIMAB
     Indication: Rheumatoid arthritis
     Route: 065
     Dates: start: 201601
  23. RITUXIMAB [Concomitant]
     Active Substance: RITUXIMAB
     Indication: Rheumatoid arthritis
     Route: 065
     Dates: start: 201703
  24. RITUXIMAB [Concomitant]
     Active Substance: RITUXIMAB
     Indication: Rheumatoid arthritis
     Route: 065
     Dates: start: 201607

REACTIONS (15)
  - Rheumatoid arthritis [Recovered/Resolved]
  - Urinary tract infection [Recovered/Resolved]
  - Oral herpes [Unknown]
  - Influenza like illness [Recovered/Resolved]
  - Rheumatoid nodule [Unknown]
  - Upper respiratory tract infection [Unknown]
  - Diverticulum intestinal [Not Recovered/Not Resolved]
  - Pancreatic steatosis [Not Recovered/Not Resolved]
  - Rheumatoid arthritis [Unknown]
  - Influenza like illness [Unknown]
  - Osteoarthritis [Unknown]
  - Bronchitis chronic [Unknown]
  - Rheumatoid arthritis [Recovered/Resolved]
  - Influenza like illness [Recovered/Resolved]
  - Respiratory tract infection [Not Recovered/Not Resolved]

NARRATIVE: CASE EVENT DATE: 20190816
